FAERS Safety Report 10866428 (Version 1)
Quarter: 2015Q1

REPORT INFORMATION
  Report Type: Spontaneous
  Country: US (occurrence: None)
  Receive Date: 20150220
  Receipt Date: 20150220
  Transmission Date: 20150721
  Serious: Yes (Hospitalization, Other)
  Sender: FDA-Public Use
  Company Number: 2015SCAL000038

PATIENT
  Age: 65 Year
  Sex: Female

DRUGS (1)
  1. METRONIDAZOLE (METRONIDAZOLE) UNKNOWN [Suspect]
     Active Substance: METRONIDAZOLE
     Indication: CLOSTRIDIUM DIFFICILE COLITIS

REACTIONS (8)
  - Toxic encephalopathy [None]
  - Cerebellar syndrome [None]
  - Hemiparesis [None]
  - Aphasia [None]
  - Medication error [None]
  - Incorrect drug administration duration [None]
  - Dysarthria [None]
  - Upper motor neurone lesion [None]
